FAERS Safety Report 8080683-8 (Version None)
Quarter: 2012Q1

REPORT INFORMATION
  Report Type: 
  Country: None (occurrence: None)
  Receive Date: 20120130
  Receipt Date: 20120123
  Transmission Date: 20120608
  Serious: Yes (Death, Disabling, Other)
  Sender: FDA-Public Use
  Company Number: PHHO2006JP06671

PATIENT
  Sex: Male
  Weight: 52 kg

DRUGS (7)
  1. SIMULECT [Suspect]
     Indication: RENAL TRANSPLANT
     Dosage: 20 MG, ONCE/SINGLE
     Route: 042
     Dates: start: 20031021, end: 20031021
  2. PROGRAF [Suspect]
     Indication: RENAL TRANSPLANT
     Route: 048
     Dates: start: 20031019, end: 20031121
  3. MYCOPHENOLATE MOFETIL (CELLCEPT) [Suspect]
     Indication: RENAL TRANSPLANT
     Route: 048
     Dates: start: 20031027, end: 20031117
  4. SOLU-MEDROL [Suspect]
     Indication: RENAL TRANSPLANT
     Dates: start: 20031021
  5. PREDNISOLONE [Suspect]
     Indication: RENAL TRANSPLANT
     Dates: end: 20031004
  6. SIMULECT [Suspect]
     Dosage: 20 MG, ONCE/SINGLE
     Route: 042
     Dates: start: 20031025, end: 20031025
  7. MEDROL [Suspect]
     Indication: RENAL TRANSPLANT

REACTIONS (14)
  - EPSTEIN-BARR VIRUS INFECTION [None]
  - SMALL INTESTINE ULCER [None]
  - SMALL INTESTINAL PERFORATION [None]
  - INTESTINAL HAEMORRHAGE [None]
  - BLOOD PRESSURE INCREASED [None]
  - KIDNEY TRANSPLANT REJECTION [None]
  - STAPHYLOCOCCAL INFECTION [None]
  - SEPSIS [None]
  - CANDIDIASIS [None]
  - MALAISE [None]
  - PYREXIA [None]
  - HISTIOCYTOSIS HAEMATOPHAGIC [None]
  - MELAENA [None]
  - HEPATIC FUNCTION ABNORMAL [None]
